FAERS Safety Report 5564709-9 (Version None)
Quarter: 2007Q4

REPORT INFORMATION
  Report Type: 
  Country: None (occurrence: None)
  Receive Date: 20071214
  Receipt Date: 20071214
  Transmission Date: 20080405
  Serious: Yes (Death, Hospitalization)
  Sender: FDA-Public Use
  Company Number: None

PATIENT
  Sex: Female
  Weight: 61 kg

DRUGS (3)
  1. CYTARABINE [Suspect]
     Dosage: 1141 MG
  2. DAUNORUBICIN HCL [Suspect]
     Dosage: 441 MG
  3. ETOPOSIDE [Suspect]
     Dosage: 489 MG

REACTIONS (10)
  - FUNGAL TEST POSITIVE [None]
  - GENERAL PHYSICAL HEALTH DETERIORATION [None]
  - INFECTION [None]
  - MULTI-ORGAN FAILURE [None]
  - PLEURAL EFFUSION [None]
  - PNEUMONIA [None]
  - RESPIRATORY DISORDER [None]
  - TACHYCARDIA [None]
  - TACHYPNOEA [None]
  - THERAPEUTIC RESPONSE DECREASED [None]
